FAERS Safety Report 8329529-0 (Version None)
Quarter: 2012Q2

REPORT INFORMATION
  Report Type: 
  Country: None (occurrence: None)
  Receive Date: 20120502
  Receipt Date: 20120424
  Transmission Date: 20120825
  Serious: Yes (Other)
  Sender: FDA-Public Use
  Company Number: CA-ABBOTT-12P-028-0928966-00

PATIENT
  Sex: Female
  Weight: 49.94 kg

DRUGS (6)
  1. UNKNOWN DRUG [Concomitant]
     Indication: PAIN
  2. UNKNOWN DRUG [Concomitant]
     Indication: MIGRAINE
  3. UNKNOWN DRUG [Concomitant]
     Indication: HYPERTENSION
  4. HUMIRA [Suspect]
     Indication: CROHN'S DISEASE
     Dosage: LOADING DOSE: 160MG
     Route: 058
     Dates: start: 20120417
  5. UNKNOWN DRUG [Concomitant]
     Indication: NAUSEA
  6. PREDNISONE [Concomitant]
     Indication: INTESTINAL OBSTRUCTION

REACTIONS (2)
  - SOFT TISSUE NECROSIS [None]
  - ABDOMINAL ADHESIONS [None]
